FAERS Safety Report 9301155 (Version 5)
Quarter: 2013Q3

REPORT INFORMATION
  Report Type: Spontaneous
  Country: US (occurrence: US)
  Receive Date: 20130521
  Receipt Date: 20130802
  Transmission Date: 20140515
  Serious: Yes (Death, Hospitalization)
  Sender: FDA-Public Use
  Company Number: US-GLAXOSMITHKLINE-A1019522A

PATIENT
  Age: 31 Year
  Sex: Female
  Weight: 86.8 kg

DRUGS (13)
  1. FLOLAN [Suspect]
     Indication: PULMONARY ARTERIAL HYPERTENSION
     Dosage: 27NGKM CONTINUOUS
     Route: 042
     Dates: start: 20130203
  2. ADCIRCA [Concomitant]
  3. CITALOPRAM [Concomitant]
  4. LOMOTIL [Concomitant]
  5. FLORASTOR [Concomitant]
  6. LORTAB [Concomitant]
  7. IBUPROFEN [Concomitant]
  8. LETAIRIS [Concomitant]
  9. OMEPRAZOLE [Concomitant]
  10. POTASSIUM CHLORIDE [Concomitant]
  11. TRAMADOL [Concomitant]
  12. WARFARIN [Concomitant]
  13. AMBIEN [Concomitant]

REACTIONS (8)
  - Pulmonary arterial hypertension [Recovering/Resolving]
  - Clostridium difficile infection [Unknown]
  - Impaired gastric emptying [Unknown]
  - Vomiting [Recovering/Resolving]
  - Nausea [Recovering/Resolving]
  - Catheter site pruritus [Unknown]
  - Hospitalisation [Unknown]
  - Death [Fatal]
